FAERS Safety Report 4318062-9 (Version None)
Quarter: 2004Q1

REPORT INFORMATION
  Report Type: 
  Country: None (occurrence: None)
  Receive Date: 20040317
  Receipt Date: 20040308
  Transmission Date: 20041129
  Serious: Yes (Death, Other)
  Sender: FDA-Public Use
  Company Number: US-BRISTOL-MYERS SQUIBB COMPANY-12527016

PATIENT

DRUGS (1)
  1. COUMADIN [Suspect]
     Dosage: ON RX IN THE ^LAST FEW YEARS^. WAS KEPT ON COUMADIN, BUT THEN SOMETIME LATER EXPIRED.

REACTIONS (3)
  - DEATH [None]
  - HAEMATOMA [None]
  - ROAD TRAFFIC ACCIDENT [None]
